FAERS Safety Report 4860883-8 (Version None)
Quarter: 2005Q4

REPORT INFORMATION
  Report Type: 
  Country: None (occurrence: None)
  Receive Date: 20051216
  Receipt Date: 20051212
  Transmission Date: 20060501
  Serious: Yes (Hospitalization)
  Sender: FDA-Public Use
  Company Number: 200514202GDS

PATIENT
  Age: 69 Year
  Sex: Female

DRUGS (1)
  1. BUFFERIN [Suspect]
     Dates: start: 20020101

REACTIONS (7)
  - ANAEMIA [None]
  - CHOLECYSTITIS [None]
  - CHOLELITHIASIS [None]
  - DYSPNOEA [None]
  - GALLBLADDER ENLARGEMENT [None]
  - GASTROINTESTINAL HAEMORRHAGE [None]
  - HAEMOBILIA [None]
